FAERS Safety Report 16807063 (Version 1)
Quarter: 2019Q3

REPORT INFORMATION
  Report Type: Spontaneous
  Country: JP (occurrence: JP)
  Receive Date: 20190913
  Receipt Date: 20190913
  Transmission Date: 20191005
  Serious: Yes (Other)
  Sender: FDA-Public Use
  Company Number: JP-GLAXOSMITHKLINE-JP2019JPN163688

PATIENT
  Age: 83 Year

DRUGS (1)
  1. VALTREX [Suspect]
     Active Substance: VALACYCLOVIR HYDROCHLORIDE
     Indication: HERPES ZOSTER
     Dosage: 3000 MG, 1D
     Route: 048
     Dates: start: 20190827, end: 20190902

REACTIONS (5)
  - Altered state of consciousness [Unknown]
  - Product use issue [Unknown]
  - Prescribed overdose [Unknown]
  - Somnolence [Unknown]
  - Encephalopathy [Unknown]

NARRATIVE: CASE EVENT DATE: 20190827
